FAERS Safety Report 5504186-7 (Version None)
Quarter: 2007Q4

REPORT INFORMATION
  Report Type: 
  Country: None (occurrence: None)
  Receive Date: 20071101
  Receipt Date: 20071025
  Transmission Date: 20080405
  Serious: Yes (Other)
  Sender: FDA-Public Use
  Company Number: B0486341A

PATIENT
  Sex: Male

DRUGS (6)
  1. PAXIL [Suspect]
     Indication: DEPRESSION
     Route: 048
     Dates: start: 20050401, end: 20070718
  2. ZOLPIDEM [Concomitant]
     Indication: INSOMNIA
     Dosage: 10MG PER DAY
     Route: 048
     Dates: start: 20070426
  3. DOGMATYL [Concomitant]
     Indication: DEPRESSION
     Route: 048
     Dates: start: 20050401, end: 20060630
  4. FLUVOXAMINE MALEATE [Concomitant]
     Indication: DEPRESSION
     Route: 048
     Dates: start: 20070621, end: 20070829
  5. PRAVASTATIN [Concomitant]
     Route: 048
     Dates: start: 20060630, end: 20070202
  6. VITAMIN B6 [Concomitant]
     Route: 048
     Dates: start: 20070912

REACTIONS (4)
  - DYSKINESIA [None]
  - ORAL DISCOMFORT [None]
  - SOMATIC HALLUCINATION [None]
  - STOMATITIS [None]
